FAERS Safety Report 8617572 (Version 3)
Quarter: 2013Q4

REPORT INFORMATION
  Report Type: Spontaneous
  Country: US (occurrence: US)
  Receive Date: 20120615
  Receipt Date: 20131030
  Transmission Date: 20140711
  Serious: Yes (Other)
  Sender: FDA-Public Use
  Company Number: US-ROCHE-1078152

PATIENT
  Age: 29 Year
  Sex: Female

DRUGS (4)
  1. ACCUTANE [Suspect]
     Indication: ACNE
     Route: 065
     Dates: start: 1987, end: 1988
  2. ACCUTANE [Suspect]
     Route: 065
     Dates: start: 1992
  3. ACCUTANE [Suspect]
     Route: 065
     Dates: start: 19920324, end: 19920630
  4. ACCUTANE [Suspect]
     Route: 065
     Dates: start: 19911106

REACTIONS (7)
  - Colitis ulcerative [Unknown]
  - Inflammatory bowel disease [Unknown]
  - Injury [Unknown]
  - Irritable bowel syndrome [Unknown]
  - Large intestine polyp [Unknown]
  - Anal stenosis [Unknown]
  - Blood cholesterol increased [Unknown]
